FAERS Safety Report 9241117 (Version 1)
Quarter: 2013Q2

REPORT INFORMATION
  Report Type: Spontaneous
  Country: FR (occurrence: FR)
  Receive Date: 20130419
  Receipt Date: 20130419
  Transmission Date: 20140414
  Serious: Yes (Other)
  Sender: FDA-Public Use
  Company Number: FR-BRISTOL-MYERS SQUIBB COMPANY-18782862

PATIENT
  Age: 41 Year
  Sex: Female

DRUGS (3)
  1. REYATAZ CAPS [Suspect]
     Indication: HIV INFECTION
     Route: 048
     Dates: start: 2006, end: 20121015
  2. TRUVADA [Concomitant]
     Indication: HIV INFECTION
     Route: 048
     Dates: start: 2006
  3. NORVIR [Concomitant]
     Indication: HIV INFECTION
     Route: 048
     Dates: start: 2006

REACTIONS (1)
  - Renal colic [Recovered/Resolved]
